FAERS Safety Report 24920981 (Version 3)
Quarter: 2025Q2

REPORT INFORMATION
  Report Type: Report from Study
  Country: CN (occurrence: CN)
  Receive Date: 20250204
  Receipt Date: 20250508
  Transmission Date: 20250717
  Serious: Yes (Hospitalization)
  Sender: DR REDDYS
  Company Number: CN-RDY-CHN/2025/01/001291

PATIENT
  Age: 15 Month
  Sex: Female
  Weight: 7 kg

DRUGS (21)
  1. VIGABATRIN [Suspect]
     Active Substance: VIGABATRIN
     Indication: Infantile spasms
     Dosage: 3.5 ML IN THE MORNING AND 3.5 ML IN THE EVENING, WITH DOSE OF 50 MG/KG/D
     Route: 048
     Dates: start: 20241214, end: 20250104
  2. VIGABATRIN [Suspect]
     Active Substance: VIGABATRIN
     Dosage: 5.3 ML IN THE MORNING, 5.2 ML IN THE EVENING, 75 MG/KG/D
     Route: 048
     Dates: start: 20250105, end: 20250114
  3. VIGABATRIN [Suspect]
     Active Substance: VIGABATRIN
     Dosage: 7 ML IN THE MORNING AND 7 ML IN THE EVENING WITH DOSE OF 100 MG/KG/D
     Route: 048
     Dates: start: 20250114, end: 20250213
  4. VIGABATRIN [Suspect]
     Active Substance: VIGABATRIN
     Dosage: 7.7 ML IN THE MORNING AND 7.7 ML IN THE EVENING WITH DOSE OF 110 MG/KG/D
     Route: 048
     Dates: start: 20250214, end: 20250304
  5. VIGABATRIN [Suspect]
     Active Substance: VIGABATRIN
     Dosage: 8.8 ML IN THE MORNING AND 8.8 ML IN THE EVENING WITH DOSE OF 110 MG/KG/D
     Route: 048
     Dates: start: 20250304, end: 20250320
  6. VIGABATRIN [Suspect]
     Active Substance: VIGABATRIN
     Dosage: ON 09-APR-2025 10ML AT NIGHT AND ON 10-APR-2025 10 ML IN THE MORNING WITH DOSE OF 125 MG/KG/D.
     Route: 048
     Dates: start: 20250321, end: 20250410
  7. COENZYME Q10 [Concomitant]
     Active Substance: DIETARY SUPPLEMENT\UBIDECARENONE
     Indication: Cardiomyopathy
     Route: 065
     Dates: start: 20241009
  8. Vitamin AD Drops [Concomitant]
     Indication: Calcium deficiency
     Dosage: DOSE: 1 TABLET
     Route: 065
     Dates: start: 20230819
  9. Vitamin B6 Tablets [Concomitant]
     Indication: Infantile spasms
     Dosage: DOSE: 1 TABLET
     Route: 048
     Dates: start: 20240527, end: 20241226
  10. LEVOCARNITINE [Concomitant]
     Active Substance: LEVOCARNITINE
     Indication: Infantile spasms
     Dosage: DOSE: 1 TABLET
     Route: 048
     Dates: start: 20240715, end: 20241226
  11. TOPIRAMATE [Concomitant]
     Active Substance: TOPIRAMATE
     Indication: Infantile spasms
     Dosage: DOSE: 1 TABLET
     Route: 048
     Dates: start: 20240527, end: 20241226
  12. Lysine Inositol and Vitamin B12 Oral Granules [Concomitant]
     Indication: Infantile spasms
     Route: 048
     Dates: start: 20241014, end: 20241219
  13. Vitamin D drops [Concomitant]
     Indication: Calcium deficiency
     Dosage: FORMULATION: DOSAGE FORM
     Route: 048
     Dates: start: 202403, end: 20241226
  14. Alfacalcidol Soft Capsule [Concomitant]
     Indication: Vitamin supplementation
     Route: 048
     Dates: start: 20240527, end: 20240603
  15. Pediatric calcium [Concomitant]
     Indication: Mineral supplementation
     Route: 048
     Dates: start: 20240527, end: 20240603
  16. LEVETIRACETAM [Concomitant]
     Active Substance: LEVETIRACETAM
     Indication: Infantile spasms
     Dosage: 1.5ML IN THE MORNING AND 1.5ML IN THE EVENING
     Route: 048
     Dates: start: 20241009, end: 20241225
  17. Houttuynia nasal drops [Concomitant]
     Indication: Sinusitis
     Route: 045
     Dates: start: 20241211, end: 20241213
  18. PREDNISONE ACETATE [Concomitant]
     Active Substance: PREDNISONE ACETATE
     Indication: Infantile spasms
     Dosage: DOSE: 1.5 TABLETS
     Route: 048
     Dates: start: 20240603, end: 20240609
  19. PREDNISONE ACETATE [Concomitant]
     Active Substance: PREDNISONE ACETATE
     Dosage: DOSE: 1 TABLETS
     Route: 048
     Dates: start: 20240610, end: 20240616
  20. PREDNISONE ACETATE [Concomitant]
     Active Substance: PREDNISONE ACETATE
     Dosage: DOSE: 1 TABLET
     Route: 048
     Dates: start: 20240617, end: 20240625
  21. PREDNISONE ACETATE [Concomitant]
     Active Substance: PREDNISONE ACETATE
     Dosage: DOSE: 1.5 TABLETS
     Route: 048
     Dates: start: 20240323, end: 20240602

REACTIONS (2)
  - Incarcerated inguinal hernia [Recovered/Resolved]
  - Inguinal hernia [Recovered/Resolved]

NARRATIVE: CASE EVENT DATE: 20250114
